FAERS Safety Report 7201294-X (Version None)
Quarter: 2010Q4

REPORT INFORMATION
  Report Type: 
  Country: None (occurrence: None)
  Receive Date: 20101215
  Receipt Date: 20101130
  Transmission Date: 20110411
  Serious: Yes (Other)
  Sender: FDA-Public Use
  Company Number: 1000016228

PATIENT
  Age: 91 Year
  Sex: Male
  Weight: 77 kg

DRUGS (7)
  1. ESCITALOPRAM [Suspect]
     Indication: DEPRESSION
     Dosage: 10 MG (10 MG, 1 IN 1 D), ORAL
     Route: 048
     Dates: start: 20100726, end: 20100730
  2. KARDEGIC (ACETYLSALICYLATE LYSINE) (ACETYLSALICYLATE LYSINE) [Concomitant]
  3. CORVASAL (MOLSIDOMINE) (MOLOSIDOMINE) [Concomitant]
  4. CRESTOR (ROUSVASTATIN) ROSUSVASTATIN) [Concomitant]
  5. FOSAVANCE (ALENDRONATE SODIUM, COLECALCIFEROL) (ALENDRONATE SODIUM), C [Concomitant]
  6. VASTAREL (TRIMETAZIDINE HYDROCHLORIDE) (TRIMETAZIDINE HYDROCHLORIDE) [Concomitant]
  7. XATREL (ALFUSION) (ALFUSION) [Concomitant]

REACTIONS (3)
  - CONFUSIONAL STATE [None]
  - DISTURBANCE IN ATTENTION [None]
  - FATIGUE [None]
